FAERS Safety Report 9704228 (Version 1)
Quarter: 2013Q4

REPORT INFORMATION
  Report Type: Report from Study
  Country: IT (occurrence: IT)
  Receive Date: 20131122
  Receipt Date: 20131122
  Transmission Date: 20140711
  Serious: Yes (Death, Other)
  Sender: FDA-Public Use
  Company Number: IT-ROCHE-1305761

PATIENT
  Sex: 0

DRUGS (2)
  1. CAPECITABINE [Suspect]
     Indication: BREAST CANCER METASTATIC
     Dosage: 1000 (750 IF }/= 65 YEARS) MG/M2/BID D1 TO D14
     Route: 065
  2. VINORELBINE [Suspect]
     Indication: BREAST CANCER METASTATIC
     Dosage: 80 MG/M2 DOSE (FOLLOWING A FIRST CYCLE AT 60 MG/M2, DOSE ESCALATION TO 80 IN THE ABSENCE OF GRADE 3
     Route: 048

REACTIONS (7)
  - Death [Fatal]
  - Neutropenia [Unknown]
  - Anaemia [Unknown]
  - Infection [Unknown]
  - Diarrhoea [Unknown]
  - Vomiting [Unknown]
  - Fatigue [Unknown]
